FAERS Safety Report 21284126 (Version 18)
Quarter: 2025Q2

REPORT INFORMATION
  Report Type: Report from Study
  Country: US (occurrence: US)
  Receive Date: 20220902
  Receipt Date: 20250603
  Transmission Date: 20250716
  Serious: Yes (Hospitalization, Other)
  Sender: TAKEDA
  Company Number: US-TAKEDA-US202007315

PATIENT
  Age: 64 Year
  Sex: Female
  Weight: 91 kg

DRUGS (41)
  1. HUMAN IMMUNOGLOBULIN G [Suspect]
     Active Substance: HUMAN IMMUNOGLOBULIN G
     Indication: Primary immunodeficiency syndrome
     Dosage: UNK UNK, Q4WEEKS
  2. HUMAN IMMUNOGLOBULIN G [Suspect]
     Active Substance: HUMAN IMMUNOGLOBULIN G
     Indication: Immunodeficiency common variable
     Dosage: 80 GRAM, MONTHLY
  3. HUMAN IMMUNOGLOBULIN G [Suspect]
     Active Substance: HUMAN IMMUNOGLOBULIN G
     Dosage: 50 GRAM, Q3WEEKS
  4. HUMAN IMMUNOGLOBULIN G [Suspect]
     Active Substance: HUMAN IMMUNOGLOBULIN G
  5. HUMAN IMMUNOGLOBULIN G [Suspect]
     Active Substance: HUMAN IMMUNOGLOBULIN G
  6. HUMAN IMMUNOGLOBULIN G [Suspect]
     Active Substance: HUMAN IMMUNOGLOBULIN G
  7. HUMAN IMMUNOGLOBULIN G [Suspect]
     Active Substance: HUMAN IMMUNOGLOBULIN G
  8. GAMMAGARD S/D [Suspect]
     Active Substance: HUMAN IMMUNOGLOBULIN G
     Indication: Immunodeficiency common variable
  9. GAMMAGARD S/D [Suspect]
     Active Substance: HUMAN IMMUNOGLOBULIN G
     Indication: Primary immunodeficiency syndrome
  10. DICYCLOMINE HYDROCHLORIDE [Concomitant]
     Active Substance: DICYCLOMINE HYDROCHLORIDE
  11. LIDOCAINE [Concomitant]
     Active Substance: LIDOCAINE
  12. XIIDRA [Concomitant]
     Active Substance: LIFITEGRAST
  13. METHOCARBAMOL [Concomitant]
     Active Substance: METHOCARBAMOL
  14. MELOXICAM [Concomitant]
     Active Substance: MELOXICAM
  15. EPINEPHRINE [Concomitant]
     Active Substance: EPINEPHRINE
  16. CLEOCIN [Concomitant]
     Active Substance: CLINDAMYCIN PHOSPHATE
  17. ENBREL [Concomitant]
     Active Substance: ETANERCEPT
  18. NYSTATIN [Concomitant]
     Active Substance: NYSTATIN
  19. PRAZOSIN HYDROCHLORIDE [Concomitant]
     Active Substance: PRAZOSIN HYDROCHLORIDE
  20. TIZANIDINE HYDROCHLORIDE [Concomitant]
     Active Substance: TIZANIDINE HYDROCHLORIDE
  21. ADVAIR HFA [Concomitant]
     Active Substance: FLUTICASONE PROPIONATE\SALMETEROL XINAFOATE
  22. SPIRIVA [Concomitant]
     Active Substance: TIOTROPIUM BROMIDE MONOHYDRATE
  23. NALOXONE HCL [Concomitant]
     Active Substance: NALOXONE HYDROCHLORIDE
  24. CONCERTA [Concomitant]
     Active Substance: METHYLPHENIDATE HYDROCHLORIDE
  25. FLUOCINOLONE ACETONIDE [Concomitant]
     Active Substance: FLUOCINOLONE ACETONIDE
  26. ONDANSETRON [Concomitant]
     Active Substance: ONDANSETRON
  27. ALBUTEROL SULFATE [Concomitant]
     Active Substance: ALBUTEROL SULFATE
  28. FAMOTIDINE [Concomitant]
     Active Substance: FAMOTIDINE
  29. NAPROXEN [Concomitant]
     Active Substance: NAPROXEN
  30. XANAX [Concomitant]
     Active Substance: ALPRAZOLAM
  31. LOTEPREDNOL [Concomitant]
     Active Substance: LOTEPREDNOL
  32. MODAFINIL [Concomitant]
     Active Substance: MODAFINIL
  33. MUPIROCIN [Concomitant]
     Active Substance: MUPIROCIN
  34. MORPHINE SULFATE [Concomitant]
     Active Substance: MORPHINE SULFATE
  35. IBUPROFEN [Concomitant]
     Active Substance: IBUPROFEN
  36. OXYCODONE HYDROCHLORIDE [Concomitant]
     Active Substance: OXYCODONE HYDROCHLORIDE
  37. ESTRADIOL [Concomitant]
     Active Substance: ESTRADIOL
  38. ACETAMINOPHEN [Concomitant]
     Active Substance: ACETAMINOPHEN
  39. DIPHENHYDRAMINE HYDROCHLORIDE [Concomitant]
     Active Substance: DIPHENHYDRAMINE HYDROCHLORIDE
  40. SODIUM CHLORIDE [Concomitant]
     Active Substance: SODIUM CHLORIDE
  41. SODIUM CHLORIDE [Concomitant]
     Active Substance: SODIUM CHLORIDE

REACTIONS (33)
  - Psoriatic arthropathy [Unknown]
  - Intervertebral disc protrusion [Unknown]
  - Diverticulitis [Unknown]
  - Chest pain [Unknown]
  - Abdominal pain upper [Unknown]
  - Addison^s disease [Unknown]
  - Inappropriate schedule of product administration [Unknown]
  - Vertigo [Unknown]
  - Malaise [Recovering/Resolving]
  - Headache [Recovered/Resolved]
  - Gallbladder disorder [Unknown]
  - Localised infection [Unknown]
  - Brain fog [Unknown]
  - Illness [Unknown]
  - Back disorder [Unknown]
  - Musculoskeletal discomfort [Unknown]
  - Road traffic accident [Unknown]
  - Muscle strain [Unknown]
  - Gait disturbance [Unknown]
  - Walking aid user [Unknown]
  - Sleep apnoea syndrome [Unknown]
  - Dermatitis contact [Unknown]
  - Asthenia [Unknown]
  - Muscular weakness [Unknown]
  - Paraesthesia [Unknown]
  - Oedema [Unknown]
  - Nausea [Recovering/Resolving]
  - Insurance issue [Unknown]
  - Pituitary-dependent Cushing^s syndrome [Unknown]
  - Weight decreased [Unknown]
  - Product use issue [Unknown]
  - Pain in extremity [Unknown]
  - Fatigue [Recovered/Resolved]

NARRATIVE: CASE EVENT DATE: 20241111
